FAERS Safety Report 5324353-5 (Version None)
Quarter: 2007Q2

REPORT INFORMATION
  Report Type: 
  Country: None (occurrence: None)
  Receive Date: 20070514
  Receipt Date: 20070504
  Transmission Date: 20071010
  Serious: Yes (Hospitalization)
  Sender: FDA-Public Use
  Company Number: NO-ABBOTT-07P-122-0367222-00

PATIENT
  Sex: Female

DRUGS (9)
  1. HUMIRA [Suspect]
     Indication: PSORIATIC ARTHROPATHY
     Route: 058
     Dates: start: 20060101, end: 20060901
  2. HUMIRA [Suspect]
     Route: 058
     Dates: start: 20061027, end: 20070104
  3. METHOTREXATE [Suspect]
     Indication: PSORIATIC ARTHROPATHY
     Dates: start: 20000101, end: 20070105
  4. FOLIC ACID [Concomitant]
     Indication: DRUG USE FOR UNKNOWN INDICATION
     Route: 048
  5. IBUPROFEN [Concomitant]
     Indication: PAIN
  6. SUMATRIPTAN SUCCINATE [Concomitant]
     Indication: MIGRAINE
  7. LANSOPRAZOLE [Concomitant]
     Indication: STOMACH DISCOMFORT
  8. METOPROLOL SUCCINATE [Concomitant]
     Indication: HYPERTENSION
  9. HYZAAR [Concomitant]
     Indication: HYPERTENSION
     Route: 048

REACTIONS (14)
  - CHEST PAIN [None]
  - CHILLS [None]
  - COUGH [None]
  - DIZZINESS [None]
  - DYSPNOEA [None]
  - EYE IRRITATION [None]
  - FATIGUE [None]
  - FLUSHING [None]
  - GENITAL INFECTION FUNGAL [None]
  - INCREASED UPPER AIRWAY SECRETION [None]
  - PARAESTHESIA [None]
  - POLLAKIURIA [None]
  - PYREXIA [None]
  - WHEEZING [None]
